FAERS Safety Report 7982397-9 (Version None)
Quarter: 2011Q4

REPORT INFORMATION
  Report Type: 
  Country: None (occurrence: None)
  Receive Date: 20111214
  Receipt Date: 20111214
  Transmission Date: 20120403
  Serious: Yes (Hospitalization)
  Sender: FDA-Public Use
  Company Number: None

PATIENT
  Sex: Female
  Weight: 66 kg

DRUGS (3)
  1. LISINOPRIL [Concomitant]
  2. BELATACEPT 250 MG, VIALS - BRISTOL-MYERS SQUIBB [Suspect]
     Indication: IMMUNOSUPPRESSION
     Dosage: 5 MGS/KG
     Dates: start: 20101019
  3. RAPAMUNE [Concomitant]

REACTIONS (2)
  - OVARIAN CYST [None]
  - FALLOPIAN TUBE CYST [None]
